FAERS Safety Report 8730220 (Version 2)
Quarter: 2013Q1

REPORT INFORMATION
  Report Type: Spontaneous
  Country: BR (occurrence: BR)
  Receive Date: 20120817
  Receipt Date: 20130304
  Transmission Date: 20140127
  Serious: Yes (Other)
  Sender: FDA-Public Use
  Company Number: PHHY2012BR071193

PATIENT
  Sex: Female

DRUGS (5)
  1. GALVUS [Suspect]
     Dosage: 1 DF(50 MG) BID
     Route: 048
  2. RASILEZ [Suspect]
     Indication: HYPERTENSION
     Dosage: 300 MG, BID
     Route: 048
  3. GLIFAGE [Suspect]
     Dosage: 2 DF (500 MG) DAILY
     Route: 048
  4. METFORMIN [Concomitant]
     Dosage: UNK
  5. ATENOLOL CHLORTHALIDONE [Concomitant]
     Indication: HYPERTENSION
     Dosage: 2 DF (50 MG /12.5 MG) DAILY

REACTIONS (1)
  - Hypertension [Unknown]
